FAERS Safety Report 23785441 (Version 1)
Quarter: 2024Q2

REPORT INFORMATION
  Report Type: Spontaneous
  Country: US (occurrence: US)
  Receive Date: 20240425
  Receipt Date: 20240425
  Transmission Date: 20240716
  Serious: Yes (Hospitalization, Other)
  Sender: FDA-Public Use
  Company Number: US-ELI_LILLY_AND_COMPANY-US202404013233

PATIENT
  Age: 59 Year
  Sex: Male
  Weight: 85.2 kg

DRUGS (19)
  1. ERBITUX [Suspect]
     Active Substance: CETUXIMAB
     Indication: Colorectal cancer metastatic
     Dosage: 1000 MG, 2/M
     Route: 042
     Dates: start: 20220929, end: 20221116
  2. ELOXATIN [Suspect]
     Active Substance: OXALIPLATIN
     Indication: Colorectal cancer metastatic
     Dosage: 167.5 MG, OTHER (EVERY 2 WEEKS)
     Route: 042
     Dates: start: 20220929, end: 20221116
  3. FLUOROURACIL [Suspect]
     Active Substance: FLUOROURACIL
     Indication: Colorectal cancer metastatic
     Dosage: 800 MG, 2/M
     Route: 040
     Dates: start: 20220929, end: 20221116
  4. FLUOROURACIL [Suspect]
     Active Substance: FLUOROURACIL
     Dosage: 4725 MG, 2/M
     Route: 041
     Dates: start: 20220929, end: 20221116
  5. ENCORAFENIB [Suspect]
     Active Substance: ENCORAFENIB
     Indication: Colorectal cancer metastatic
     Dosage: 300 MG, DAILY
     Route: 048
     Dates: start: 20220929, end: 20221116
  6. LEUCOVORIN [Suspect]
     Active Substance: LEUCOVORIN\LEUCOVORIN CALCIUM
     Indication: Colorectal cancer metastatic
     Dosage: 800 MG, OTHER (EVERY 2 WEEKS)
     Route: 042
     Dates: start: 20220929, end: 20221116
  7. LEVOLEUCOVORIN CALCIUM [Suspect]
     Active Substance: LEVOLEUCOVORIN CALCIUM
     Indication: Product used for unknown indication
     Dosage: UNK UNK, UNKNOWN
     Route: 065
  8. OXYCODONE [Suspect]
     Active Substance: OXYCODONE\OXYCODONE HYDROCHLORIDE
     Indication: Product used for unknown indication
     Dosage: UNK, UNKNOWN
     Route: 065
  9. ZOFRAN [Concomitant]
     Active Substance: ONDANSETRON HYDROCHLORIDE
     Indication: Nausea
     Dosage: UNK, UNKNOWN
     Route: 048
     Dates: start: 20221005
  10. ZOFRAN [Concomitant]
     Active Substance: ONDANSETRON HYDROCHLORIDE
     Indication: Vomiting
  11. TENORMIN [Concomitant]
     Active Substance: ATENOLOL
     Indication: Hypertension
     Dosage: UNK, UNKNOWN
     Route: 048
     Dates: start: 20130708, end: 20221112
  12. VARUBI [ROLAPITANT HYDROCHLORIDE MONOHYDRATE] [Concomitant]
     Indication: Nausea
     Dosage: UNK, UNKNOWN
     Route: 048
     Dates: start: 20221102
  13. VARUBI [ROLAPITANT HYDROCHLORIDE MONOHYDRATE] [Concomitant]
     Indication: Vomiting
  14. BENADRYL [Concomitant]
     Active Substance: DIPHENHYDRAMINE HYDROCHLORIDE
     Indication: Premedication
     Dosage: UNK, UNKNOWN
     Route: 042
     Dates: start: 20221102
  15. DECADRON [Concomitant]
     Active Substance: DEXAMETHASONE
     Indication: Premedication
     Dosage: UNK, UNKNOWN
     Route: 048
     Dates: start: 20221102
  16. IMODIUM A-D [Concomitant]
     Active Substance: LOPERAMIDE HYDROCHLORIDE
     Indication: Diarrhoea
     Dosage: UNK, UNKNOWN
     Route: 048
     Dates: start: 20221007
  17. LEXAPRO [Concomitant]
     Active Substance: ESCITALOPRAM OXALATE
     Indication: Depression
     Dosage: UNK, UNKNOWN
     Route: 048
     Dates: start: 20220504
  18. ZOVIRAX [Concomitant]
     Active Substance: ACYCLOVIR
     Indication: Herpes simplex
     Dosage: UNK, UNKNOWN
     Route: 048
     Dates: start: 2014
  19. TRAMADOL [Concomitant]
     Active Substance: TRAMADOL\TRAMADOL HYDROCHLORIDE
     Indication: Product used for unknown indication
     Dosage: UNK, UNKNOWN
     Route: 065

REACTIONS (5)
  - Metabolic encephalopathy [Recovered/Resolved]
  - Cellulitis [Recovered/Resolved with Sequelae]
  - Cellulitis [Unknown]
  - Sepsis [Recovered/Resolved]
  - Memory impairment [Unknown]

NARRATIVE: CASE EVENT DATE: 20230211
